FAERS Safety Report 5749868-7 (Version None)
Quarter: 2008Q2

REPORT INFORMATION
  Report Type: 
  Country: None (occurrence: None)
  Receive Date: 20080527
  Receipt Date: 20080513
  Transmission Date: 20081010
  Serious: Yes (Other)
  Sender: FDA-Public Use
  Company Number: ES-ROCHE-564215

PATIENT
  Age: 41 Year
  Sex: Male

DRUGS (6)
  1. PEGASYS [Suspect]
     Indication: HEPATITIS C VIRUS
     Dosage: FORM AND ROUTE: PRE-FILLED SYRINGE
     Route: 050
     Dates: start: 20061011, end: 20061215
  2. RIBAVIRIN [Interacting]
     Indication: HEPATITIS C VIRUS
     Route: 048
     Dates: start: 20061011, end: 20061220
  3. KALETRA [Interacting]
     Indication: HIV INFECTION
     Dosage: STRENGTH: 33.3 MG/ 133.3 MG
     Route: 048
     Dates: start: 20061001
  4. KALETRA [Interacting]
     Dosage: STRENGTH: 33.3 MG/ 133.3 MG
     Route: 048
     Dates: start: 20061001
  5. COMBIVIR [Interacting]
     Indication: HIV INFECTION
     Dosage: STRENGTH: 150 MG/ 300 MG; FORM: FILM COATED TABLET
     Route: 048
  6. COMBIVIR [Interacting]
     Dosage: STRENGTH: 150 MG/ 300 MG; FORM: FILM COATED TABLET
     Route: 048

REACTIONS (2)
  - DRUG INTERACTION [None]
  - POLYNEUROPATHY [None]
